FAERS Safety Report 6460775-7 (Version None)
Quarter: 2009Q4

REPORT INFORMATION
  Report Type: 
  Country: None (occurrence: None)
  Receive Date: 20091130
  Receipt Date: 20091115
  Transmission Date: 20100525
  Serious: No
  Sender: FDA-Public Use
  Company Number: PT-ELI_LILLY_AND_COMPANY-PT200911004079

PATIENT
  Sex: Male

DRUGS (2)
  1. CIALIS [Suspect]
     Dosage: 20 MG,
     Route: 065
  2. CIALIS [Suspect]
     Dosage: UNK, 1/3 (THIRD OF THE TABLET)
     Route: 065

REACTIONS (2)
  - DRUG ADMINISTRATION ERROR [None]
  - VISUAL IMPAIRMENT [None]
